FAERS Safety Report 9136297 (Version 1)
Quarter: 2013Q1

REPORT INFORMATION
  Report Type: Spontaneous
  Country: US (occurrence: US)
  Receive Date: 20130304
  Receipt Date: 20130304
  Transmission Date: 20140127
  Serious: No
  Sender: FDA-Public Use
  Company Number: US-ABBOTT-12P-163-0950120-00

PATIENT
  Sex: Female
  Weight: 90.8 kg

DRUGS (4)
  1. ANDROGEL 1% [Suspect]
     Indication: BLOOD TESTOSTERONE DECREASED
     Dates: start: 2011
  2. ANDROGEL 1% [Suspect]
     Dates: start: 201206
  3. SYNTHROID [Concomitant]
     Indication: HYPOTHYROIDISM
  4. YAZ [Concomitant]
     Indication: CONTRACEPTION

REACTIONS (6)
  - Acne [Not Recovered/Not Resolved]
  - Alopecia [Not Recovered/Not Resolved]
  - Blood testosterone decreased [Unknown]
  - Blood oestrogen decreased [Unknown]
  - Off label use [Not Recovered/Not Resolved]
  - Blood testosterone decreased [Not Recovered/Not Resolved]
